FAERS Safety Report 4496901-9 (Version None)
Quarter: 2004Q3

REPORT INFORMATION
  Report Type: 
  Country: None (occurrence: None)
  Receive Date: 20040928
  Receipt Date: 20040609
  Transmission Date: 20050211
  Serious: No
  Sender: FDA-Public Use
  Company Number: 04P-163-0254893-00

PATIENT
  Age: 71 Year
  Sex: Female
  Weight: 56.6996 kg

DRUGS (7)
  1. HUMIRA [Suspect]
     Indication: RHEUMATOID ARTHRITIS
     Dosage: 40 MG, 1 IN 2 WK, SUBCUTANEOUS
     Route: 058
     Dates: start: 20040315, end: 20040426
  2. GABAPENTIN [Concomitant]
  3. PREDNISONE [Concomitant]
  4. URSODEOXYCHOLIC ACID [Concomitant]
  5. VERAPAMIL [Concomitant]
  6. RIFAMPICIN [Concomitant]
  7. AMITRIPTYLINE HCL [Concomitant]

REACTIONS (3)
  - INJECTION SITE RASH [None]
  - RASH [None]
  - SKIN NODULE [None]
